FAERS Safety Report 10460938 (Version 15)
Quarter: 2015Q2

REPORT INFORMATION
  Report Type: Report from Study
  Country: CA (occurrence: CA)
  Receive Date: 20140918
  Receipt Date: 20150609
  Transmission Date: 20150821
  Serious: Yes (Death, Hospitalization, Other)
  Sender: FDA-Public Use
  Company Number: PHHY2014CA049607

PATIENT
  Age: 83 Year
  Sex: Male

DRUGS (3)
  1. SANDOSTATIN LAR DEPOT [Suspect]
     Active Substance: OCTREOTIDE ACETATE
     Indication: CARCINOID TUMOUR
     Dosage: 10 MG, QMO
     Route: 030
     Dates: start: 20140220
  2. SANDOSTATIN [Suspect]
     Active Substance: OCTREOTIDE ACETATE
     Indication: CARCINOID TUMOUR
     Dosage: 100 UG, TID (FOR ONLY 48 HOURS)
     Route: 058
     Dates: start: 20140210, end: 20140212
  3. SANDOSTATIN LAR DEPOT [Suspect]
     Active Substance: OCTREOTIDE ACETATE
     Dosage: 10 MG, QMO
     Route: 030

REACTIONS (22)
  - Neck mass [Unknown]
  - Diarrhoea [Unknown]
  - Asthenia [Unknown]
  - Hypotension [Unknown]
  - Pneumonia [Recovering/Resolving]
  - Blood pressure decreased [Unknown]
  - Haemorrhage [Unknown]
  - Urinary tract infection [Recovering/Resolving]
  - Terminal state [Unknown]
  - Head injury [Unknown]
  - Prostatomegaly [Unknown]
  - Pulmonary embolism [Recovering/Resolving]
  - Blood pressure systolic increased [Unknown]
  - Blood pressure diastolic increased [Unknown]
  - Inflammation [Unknown]
  - Death [Fatal]
  - Dysstasia [Unknown]
  - Heart rate decreased [Unknown]
  - Dysuria [Unknown]
  - Abasia [Unknown]
  - Fall [Unknown]
  - Weight decreased [Unknown]

NARRATIVE: CASE EVENT DATE: 2014
